FAERS Safety Report 7712297-0 (Version None)
Quarter: 2011Q3

REPORT INFORMATION
  Report Type: 
  Country: None (occurrence: None)
  Receive Date: 20110822
  Receipt Date: 20110708
  Transmission Date: 20111222
  Serious: Yes (Death)
  Sender: FDA-Public Use
  Company Number: FDB-2011-024

PATIENT
  Age: 17 Year
  Sex: Female

DRUGS (14)
  1. CALCIUM GLUCONATE [Concomitant]
     Indication: PULMONARY EMBOLISM
  2. FRAGMIN [Concomitant]
  3. LEVOPHED [Concomitant]
  4. AMOXICILLIN [Concomitant]
  5. PHENOBARBITAL TAB [Concomitant]
  6. AMIODARONE HCL [Concomitant]
  7. CLINDAMYCIN [Concomitant]
  8. CAPTOPRIL [Concomitant]
  9. LASIX [Concomitant]
  10. KEEPRA [Concomitant]
  11. PROTONIX [Concomitant]
  12. PULMOLITE [Suspect]
     Indication: VENTILATION/PERFUSION SCAN
     Dates: start: 20110506
  13. CEFEPIME [Concomitant]
  14. ASPIRIN [Concomitant]

REACTIONS (4)
  - PULMONARY EMBOLISM [None]
  - SEPTIC SHOCK [None]
  - PNEUMONIA [None]
  - VENTILATION/PERFUSION SCAN ABNORMAL [None]
